FAERS Safety Report 10637374 (Version 1)
Quarter: 2014Q4

REPORT INFORMATION
  Report Type: Spontaneous
  Country: IT (occurrence: IT)
  Receive Date: 20141208
  Receipt Date: 20141208
  Transmission Date: 20150529
  Serious: Yes (Hospitalization)
  Sender: FDA-Public Use
  Company Number: IT-TEVA-527508ISR

PATIENT
  Age: 65 Year
  Sex: Female

DRUGS (9)
  1. GABAPENTIN. [Concomitant]
     Active Substance: GABAPENTIN
     Indication: DEPRESSION
     Route: 048
  2. PAROXETINE [Suspect]
     Active Substance: PAROXETINE\PAROXETINE HYDROCHLORIDE
     Indication: DEPRESSION
     Dosage: 20 MILLIGRAM DAILY;
     Route: 048
  3. TRAZODONE [Suspect]
     Active Substance: TRAZODONE HYDROCHLORIDE
     Indication: DEPRESSION
     Dosage: 12 MILLIGRAM DAILY;
     Route: 048
  4. AMLODIPINE [Suspect]
     Active Substance: AMLODIPINE BESYLATE
     Indication: STRESS CARDIOMYOPATHY
     Route: 065
  5. PERPHENAZINE. [Concomitant]
     Active Substance: PERPHENAZINE
     Indication: DEPRESSION
     Route: 048
  6. DELORAZEPAM [Concomitant]
     Active Substance: DELORAZEPAM
     Indication: DEPRESSION
     Route: 048
  7. ATENOLOL. [Suspect]
     Active Substance: ATENOLOL
     Indication: STRESS CARDIOMYOPATHY
     Route: 048
  8. AMITRIPTYLINE [Concomitant]
     Active Substance: AMITRIPTYLINE
     Indication: DEPRESSION
     Route: 048
  9. IMIPRAMINE [Concomitant]
     Active Substance: IMIPRAMINE
     Indication: DEPRESSION
     Route: 048

REACTIONS (3)
  - Hypotension [Unknown]
  - Stress cardiomyopathy [Recovered/Resolved]
  - Arteriospasm coronary [Recovered/Resolved]
